FAERS Safety Report 20719463 (Version 2)
Quarter: 2022Q2

REPORT INFORMATION
  Report Type: Report from Study
  Country: MX (occurrence: MX)
  Receive Date: 20220418
  Receipt Date: 20220426
  Transmission Date: 20220721
  Serious: Yes (Hospitalization)
  Sender: FDA-Public Use
  Company Number: MX-NOVARTISPH-NVSC2021MX100696

PATIENT
  Age: 64 Year
  Sex: Female
  Weight: 78 kg

DRUGS (13)
  1. METFORMIN HYDROCHLORIDE\VILDAGLIPTIN [Suspect]
     Active Substance: METFORMIN HYDROCHLORIDE\VILDAGLIPTIN
     Indication: Diabetes mellitus
     Dosage: 3 DOSAGE FORM, QD
     Route: 048
     Dates: start: 20210222
  2. METFORMIN HYDROCHLORIDE\VILDAGLIPTIN [Suspect]
     Active Substance: METFORMIN HYDROCHLORIDE\VILDAGLIPTIN
     Dosage: 3 DOSAGE FORM, QD
     Route: 048
     Dates: start: 20210422
  3. METFORMIN HYDROCHLORIDE\VILDAGLIPTIN [Suspect]
     Active Substance: METFORMIN HYDROCHLORIDE\VILDAGLIPTIN
     Dosage: 1 DOSAGE FORM, BID (50/850MG)
     Route: 048
     Dates: end: 202106
  4. METFORMIN HYDROCHLORIDE\VILDAGLIPTIN [Suspect]
     Active Substance: METFORMIN HYDROCHLORIDE\VILDAGLIPTIN
     Dosage: 1 DOSAGE FORM, Q12H (50/850MG)
     Route: 048
     Dates: start: 202106
  5. METFORMIN HYDROCHLORIDE\VILDAGLIPTIN [Suspect]
     Active Substance: METFORMIN HYDROCHLORIDE\VILDAGLIPTIN
     Dosage: UNK
     Route: 048
  6. TELMISARTAN HYDROCHLOROTHIAZIDE TEVA [Concomitant]
     Indication: Hypertension
     Dosage: 1 DOSAGE FORM, QD (80/12.5)
     Route: 048
     Dates: start: 202007
  7. NEBIVOLOL HYDROCHLORIDE [Concomitant]
     Active Substance: NEBIVOLOL HYDROCHLORIDE
     Indication: Hypertension
     Dosage: 1 DOSAGE FORM, QD (5MG)
     Route: 048
     Dates: start: 202107
  8. LOSARTAN [Concomitant]
     Active Substance: LOSARTAN
     Indication: Hypertension
     Dosage: 1 DOSAGE FORM, QD
     Route: 048
     Dates: end: 202106
  9. METOPROLOL [Concomitant]
     Active Substance: METOPROLOL
     Indication: Hypertension
     Dosage: 1 DOSAGE FORM, QD
     Route: 048
     Dates: end: 202102
  10. HYDROCHLOROTHIAZIDE [Concomitant]
     Active Substance: HYDROCHLOROTHIAZIDE
     Indication: Hypertension
     Dosage: 1 DOSAGE FORM, QD
     Route: 048
     Dates: end: 202102
  11. AMLODIPINE [Concomitant]
     Active Substance: AMLODIPINE BESYLATE
     Indication: Hypertension
     Dosage: 1 DOSAGE FORM, QD
     Route: 048
     Dates: start: 202106
  12. TELMISARTAN [Concomitant]
     Active Substance: TELMISARTAN
     Indication: Hypertension
     Dosage: 1 DOSAGE FORM, QD
     Route: 048
     Dates: start: 202106
  13. ASPIRIN [Concomitant]
     Active Substance: ASPIRIN
     Indication: Hypertension
     Dosage: 1 DOSAGE FORM, QD
     Route: 048
     Dates: start: 202106

REACTIONS (7)
  - Blood pressure increased [Recovered/Resolved]
  - Blood glucose increased [Recovered/Resolved]
  - Blood glucose increased [Recovered/Resolved]
  - Blood glucose increased [Recovered/Resolved]
  - Malaise [Unknown]
  - Emotional disorder [Recovered/Resolved]
  - Inappropriate schedule of product administration [Unknown]

NARRATIVE: CASE EVENT DATE: 20210601
